FAERS Safety Report 8624482-4 (Version None)
Quarter: 2012Q3

REPORT INFORMATION
  Report Type: 
  Country: None (occurrence: None)
  Receive Date: 20120827
  Receipt Date: 20120816
  Transmission Date: 20120928
  Serious: Yes (Other)
  Sender: FDA-Public Use
  Company Number: CN-ASTRAZENECA-2012SE60768

PATIENT
  Age: 1 Year
  Sex: Male

DRUGS (3)
  1. BRICANYL [Concomitant]
     Indication: ASTHMA
  2. PULMICORT [Suspect]
     Indication: ASTHMA
     Route: 055
     Dates: start: 20110101
  3. ATROVENT [Concomitant]
     Indication: ASTHMA

REACTIONS (1)
  - DYSPNOEA [None]
